FAERS Safety Report 11710668 (Version 1)
Quarter: 2015Q4

REPORT INFORMATION
  Report Type: Spontaneous
  Country: US (occurrence: US)
  Receive Date: 20151104
  Receipt Date: 20151104
  Transmission Date: 20160304
  Serious: No
  Sender: FDA-Public Use
  Company Number: US-ELI_LILLY_AND_COMPANY-US201103005498

PATIENT
  Age: 67 Year
  Sex: Female
  Weight: 53.06 kg

DRUGS (2)
  1. FORTEO [Suspect]
     Active Substance: TERIPARATIDE
     Indication: OSTEOPOROSIS
     Dosage: 20 UG, DAILY (1/D)
     Dates: start: 20110317
  2. FORTEO [Suspect]
     Active Substance: TERIPARATIDE
     Dosage: 20 UG, DAILY (1/D)

REACTIONS (27)
  - Heart rate decreased [Unknown]
  - Muscle spasms [Unknown]
  - Asthenia [Not Recovered/Not Resolved]
  - Nervousness [Unknown]
  - Presyncope [Unknown]
  - Feeling hot [Unknown]
  - Tachycardia [Unknown]
  - Blood magnesium decreased [Unknown]
  - Weight decreased [Unknown]
  - Injection site warmth [Unknown]
  - Fatigue [Unknown]
  - Throat irritation [Unknown]
  - Nasal congestion [Unknown]
  - Hypotension [Unknown]
  - Headache [Unknown]
  - Dizziness [Unknown]
  - Drug dose omission [Recovered/Resolved]
  - Malaise [Unknown]
  - Stress [Unknown]
  - Vertigo positional [Unknown]
  - Vomiting [Unknown]
  - Cold sweat [Unknown]
  - Palpitations [Recovering/Resolving]
  - Nausea [Not Recovered/Not Resolved]
  - Heart rate increased [Unknown]
  - Decreased appetite [Unknown]
  - Blood calcium increased [Unknown]

NARRATIVE: CASE EVENT DATE: 20110317
